FAERS Safety Report 20951366 (Version 2)
Quarter: 2022Q3

REPORT INFORMATION
  Report Type: Spontaneous
  Country: US (occurrence: US)
  Receive Date: 20220613
  Receipt Date: 20220712
  Transmission Date: 20221027
  Serious: Yes (Life-Threatening, Disabling)
  Sender: FDA-Public Use
  Company Number: US-PFIZER INC-202200820718

PATIENT
  Age: 54 Year
  Sex: Male
  Weight: 81.19 kg

DRUGS (2)
  1. VANCOMYCIN HYDROCHLORIDE [Suspect]
     Active Substance: VANCOMYCIN HYDROCHLORIDE
     Indication: Endocarditis
     Dosage: 750 MG, DAILY (EVERY 24 HOURS)
     Route: 042
     Dates: start: 20220511, end: 20220607
  2. CEFTRIAXONE [Concomitant]
     Active Substance: CEFTRIAXONE
     Dosage: 2 G, 1X/DAY (Q 24 HOURS)
     Route: 042
     Dates: start: 20220511

REACTIONS (2)
  - Drug level above therapeutic [Unknown]
  - Blood creatinine increased [Unknown]

NARRATIVE: CASE EVENT DATE: 20220101
